FAERS Safety Report 6315627-X (Version None)
Quarter: 2009Q3

REPORT INFORMATION
  Report Type: 
  Country: None (occurrence: None)
  Receive Date: 20090818
  Receipt Date: 20090716
  Transmission Date: 20100115
  Serious: Yes (Other)
  Sender: FDA-Public Use
  Company Number: 230257K09CAN

PATIENT
  Age: 31 Year
  Sex: Male

DRUGS (7)
  1. REBIF [Suspect]
     Indication: RELAPSING-REMITTING MULTIPLE SCLEROSIS
     Dosage: 44 MCG, 3 IN 1 WEEKS
     Dates: start: 20090414
  2. VITAMIN D [Concomitant]
  3. ACETAMINOPHEN [Concomitant]
  4. TYLENOL [Concomitant]
  5. ADVIL [Concomitant]
  6. EXCEDRIN (MIGRAINE) [Concomitant]
  7. IBUPROPHEN (IBUPROFEN) [Concomitant]

REACTIONS (11)
  - EMPHYSEMA [None]
  - EYE PAIN [None]
  - GAIT DISTURBANCE [None]
  - HYPOAESTHESIA ORAL [None]
  - INFLUENZA LIKE ILLNESS [None]
  - MOVEMENT DISORDER [None]
  - MYODESOPSIA [None]
  - PRURITUS [None]
  - SINUS DISORDER [None]
  - SPEECH DISORDER [None]
  - UNEVALUABLE EVENT [None]
